FAERS Safety Report 8109898 (Version 3)
Quarter: 2012Q4

REPORT INFORMATION
  Report Type: 
  Country: US (occurrence: US)
  Receive Date: 20110826
  Receipt Date: 20121008
  Transmission Date: 20130627
  Serious: Yes (Life-Threatening, Other)
  Sender: FDA-Public Use
  Company Number: US-ASTRAZENECA-2011SE50463

PATIENT
  Age: 59 Year
  Sex: Female

DRUGS (5)
  1. TOPROL XL [Suspect]
     Route: 048
  2. TOPROL XL [Suspect]
     Route: 048
  3. CYMBALTA [Concomitant]
  4. INSULIN [Concomitant]
  5. CATAPRES [Concomitant]

REACTIONS (11)
  - Respiratory failure [Unknown]
  - Coma [Unknown]
  - Meningitis bacterial [Unknown]
  - Meningitis haemophilus [Unknown]
  - Haemophilus sepsis [Unknown]
  - Back injury [Unknown]
  - Neuropathy peripheral [Unknown]
  - Oral candidiasis [Unknown]
  - Anaemia [Unknown]
  - Asthenia [Unknown]
  - Herpes simplex [Unknown]
